FAERS Safety Report 8320981-3 (Version None)
Quarter: 2012Q2

REPORT INFORMATION
  Report Type: 
  Country: None (occurrence: None)
  Receive Date: 20120430
  Receipt Date: 20120424
  Transmission Date: 20120825
  Serious: Yes (Hospitalization)
  Sender: FDA-Public Use
  Company Number: PHHY2012ES034807

PATIENT
  Age: 14 Year
  Sex: Male

DRUGS (1)
  1. CARBAMAZEPINE [Suspect]
     Indication: EPILEPSY

REACTIONS (11)
  - EPSTEIN-BARR VIRUS INFECTION [None]
  - PYREXIA [None]
  - ASTHENIA [None]
  - HEPATOMEGALY [None]
  - LEUKOCYTOSIS [None]
  - DRUG RASH WITH EOSINOPHILIA AND SYSTEMIC SYMPTOMS [None]
  - RASH MACULO-PAPULAR [None]
  - ARTHRALGIA [None]
  - HEADACHE [None]
  - LYMPHADENOPATHY [None]
  - HEPATOSPLENOMEGALY [None]
